FAERS Safety Report 6064170-4 (Version None)
Quarter: 2009Q1

REPORT INFORMATION
  Report Type: 
  Country: None (occurrence: None)
  Receive Date: 20090204
  Receipt Date: 20090127
  Transmission Date: 20090719
  Serious: Yes (Hospitalization)
  Sender: FDA-Public Use
  Company Number: DE-ABBOTT-08P-062-0473002-00

PATIENT
  Sex: Female

DRUGS (16)
  1. HUMIRA [Suspect]
     Indication: RHEUMATOID ARTHRITIS
     Route: 058
     Dates: start: 20050701, end: 20080723
  2. HUMIRA [Suspect]
  3. LEFLUNOMIDE [Suspect]
     Indication: RHEUMATOID ARTHRITIS
     Dates: start: 20040601
  4. LEFLUNOMIDE [Suspect]
     Dates: start: 20050101, end: 20060101
  5. LEFLUNOMIDE [Suspect]
     Dates: start: 20060101, end: 20070101
  6. LEFLUNOMIDE [Suspect]
     Dates: start: 20070101, end: 20070101
  7. LEFLUNOMIDE [Suspect]
     Dates: start: 20070101, end: 20080101
  8. LEFLUNOMIDE [Suspect]
     Dates: start: 20080101
  9. GLUCOCORTICOIDS [Concomitant]
     Indication: RHEUMATOID ARTHRITIS
     Dosage: 5MG DAILY
  10. COXIBS [Concomitant]
     Indication: RHEUMATOID ARTHRITIS
  11. PREDNISOLONE [Concomitant]
     Indication: RHEUMATOID ARTHRITIS
  12. CELEBREX [Concomitant]
     Indication: RHEUMATOID ARTHRITIS
  13. ESOMEPRAZOLE MAGNESIUM [Concomitant]
     Indication: DRUG USE FOR UNKNOWN INDICATION
  14. AESCUSAN-20 [Concomitant]
     Indication: DRUG USE FOR UNKNOWN INDICATION
  15. DIURAPID [Concomitant]
     Indication: DRUG USE FOR UNKNOWN INDICATION
  16. EMBOLEX [Concomitant]
     Indication: DRUG USE FOR UNKNOWN INDICATION

REACTIONS (1)
  - ARTHRALGIA [None]
